FAERS Safety Report 19095151 (Version 4)
Quarter: 2025Q4

REPORT INFORMATION
  Report Type: Spontaneous
  Country: EU (occurrence: EU)
  Receive Date: 20210405
  Receipt Date: 20251204
  Transmission Date: 20260118
  Serious: Yes (Other)
  Sender: CELLTRION
  Company Number: EU-CELLTRION INC.-2021AT004349

PATIENT

DRUGS (7)
  1. RITUXIMAB [Suspect]
     Active Substance: RITUXIMAB
     Indication: Diffuse large B-cell lymphoma stage I
     Dosage: 6 CYCLES ADMINISTERED IN TOTAL, R2-CHOP THERAPY
     Route: 065
  2. METHOTREXATE [Suspect]
     Active Substance: METHOTREXATE
     Indication: Prophylaxis
     Dosage: 2 CYCLES ADMINISTERED (HIGH DOSE)
     Route: 065
  3. CYCLOPHOSPHAMIDE [Suspect]
     Active Substance: CYCLOPHOSPHAMIDE
     Indication: Diffuse large B-cell lymphoma stage I
     Dosage: 6 CYCLES ADMINISTERED IN TOTAL R2-CHOP THERAPY
     Route: 065
  4. PREDNISONE [Suspect]
     Active Substance: PREDNISONE
     Indication: Diffuse large B-cell lymphoma stage I
     Dosage: 6 CYCLES ADMINISTERED IN TOTAL R2-CHOP THERAPY
     Route: 065
  5. LENALIDOMIDE [Suspect]
     Active Substance: LENALIDOMIDE
     Indication: Diffuse large B-cell lymphoma stage I
     Dosage: 6 CYCLES ADMINISTERED IN TOTAL R2-CHOP THERAPY
     Route: 065
  6. DOXORUBICIN [Suspect]
     Active Substance: DOXORUBICIN
     Indication: Diffuse large B-cell lymphoma stage I
     Dosage: 6 CYCLES ADMINISTERED IN TOTAL R2-CHOP THERAPY
     Route: 065
  7. VINCRISTINE [Suspect]
     Active Substance: VINCRISTINE
     Indication: Diffuse large B-cell lymphoma stage I
     Dosage: 6 CYCLES ADMINISTERED IN TOTAL R2-CHOP THERAPY
     Route: 065

REACTIONS (1)
  - Disease recurrence [Unknown]
